FAERS Safety Report 13722177 (Version 4)
Quarter: 2017Q3

REPORT INFORMATION
  Report Type: Spontaneous
  Country: US (occurrence: US)
  Receive Date: 20170706
  Receipt Date: 20170823
  Transmission Date: 20171127
  Serious: Yes (Other)
  Sender: FDA-Public Use
  Company Number: US-SA-2017SA117786

PATIENT
  Age: 48 Year
  Sex: Female
  Weight: 83.91 kg

DRUGS (1)
  1. ICY HOT XL BACK AND LARGE AREAS [Suspect]
     Active Substance: MENTHOL
     Indication: MUSCLE SPASMS
     Dosage: DOSE FORM- PATCH
     Route: 061
     Dates: start: 20170411, end: 20170411

REACTIONS (2)
  - Scar [Not Recovered/Not Resolved]
  - Burns second degree [Recovered/Resolved]

NARRATIVE: CASE EVENT DATE: 2017
